FAERS Safety Report 11698977 (Version 1)
Quarter: 2015Q4

REPORT INFORMATION
  Report Type: Spontaneous
  Country: US (occurrence: US)
  Receive Date: 20151104
  Receipt Date: 20151104
  Transmission Date: 20160304
  Serious: No
  Sender: FDA-Public Use
  Company Number: US-GLAXOSMITHKLINE-US2015148839

PATIENT
  Age: 71 Year
  Sex: Male

DRUGS (1)
  1. VENTOLIN HFA [Suspect]
     Active Substance: ALBUTEROL SULFATE
     Indication: DYSPNOEA
     Dosage: 2 PUFF(S), UNK (EVERY 6 HOURS)
     Route: 055
     Dates: start: 201509

REACTIONS (2)
  - Inappropriate schedule of drug administration [Unknown]
  - Device use error [Unknown]

NARRATIVE: CASE EVENT DATE: 201509
